FAERS Safety Report 7204227-5 (Version None)
Quarter: 2010Q4

REPORT INFORMATION
  Report Type: 
  Country: None (occurrence: None)
  Receive Date: 20101230
  Receipt Date: 20101222
  Transmission Date: 20110411
  Serious: Yes (Hospitalization)
  Sender: FDA-Public Use
  Company Number: JP-ROCHE-749088

PATIENT
  Sex: Female

DRUGS (14)
  1. ACTEMRA [Suspect]
     Indication: RHEUMATOID ARTHRITIS
     Route: 041
     Dates: start: 20101006, end: 20101202
  2. PREDONINE [Concomitant]
     Route: 048
     Dates: start: 19931201
  3. NABOAL [Concomitant]
     Route: 048
     Dates: start: 20010601
  4. METOLATE [Concomitant]
     Route: 048
     Dates: start: 20080601
  5. RHEUMATREX [Concomitant]
     Route: 048
     Dates: start: 20060601
  6. FOLIAMIN [Concomitant]
     Dosage: FORM; PERORAL AGENT
     Route: 048
     Dates: start: 20060601
  7. VOLTAREN [Concomitant]
     Dosage: ROUTE: SUPPOSITORIAE RECTALE
     Route: 054
     Dates: start: 20060601
  8. BAKTAR [Concomitant]
     Route: 048
     Dates: start: 20070329
  9. FOSAMAX [Concomitant]
     Dosage: DRUG: FOSAMAC (ALENDRONATE SODIUM HYDRATE)
     Route: 048
     Dates: start: 20060601
  10. PARIET [Concomitant]
     Dosage: DRUG: PARIET (SODIUM RABEPRAZOLE)
     Route: 048
  11. DEPAS [Concomitant]
     Dosage: FORM: PERORAL AGENT
     Route: 048
     Dates: start: 20060601
  12. HALCION [Concomitant]
     Route: 048
     Dates: start: 20060601
  13. BIOFERMIN [Concomitant]
     Dosage: FORM: PERORAL AGENT
     Route: 048
     Dates: start: 20060601
  14. SELBEX [Concomitant]
     Dosage: FORM: PERORAL AGENT
     Route: 048
     Dates: start: 20060601

REACTIONS (2)
  - CEREBRAL HAEMORRHAGE [None]
  - SUBARACHNOID HAEMORRHAGE [None]
